FAERS Safety Report 7772588-4 (Version None)
Quarter: 2011Q3

REPORT INFORMATION
  Report Type: 
  Country: None (occurrence: None)
  Receive Date: 20110922
  Receipt Date: 20110127
  Transmission Date: 20111222
  Serious: No
  Sender: FDA-Public Use
  Company Number: US-ASTRAZENECA-2011SE04732

PATIENT
  Age: 55 Year
  Sex: Female
  Weight: 78.9 kg

DRUGS (2)
  1. SEROQUEL XR [Suspect]
     Indication: BIPOLAR DISORDER
     Route: 048
     Dates: start: 20101101, end: 20101201
  2. SEROQUEL XR [Suspect]
     Indication: BIPOLAR I DISORDER
     Route: 048
     Dates: start: 20101101, end: 20101201

REACTIONS (5)
  - MANIA [None]
  - BIPOLAR I DISORDER [None]
  - INSOMNIA [None]
  - DEPRESSED MOOD [None]
  - DRUG DOSE OMISSION [None]
